FAERS Safety Report 9434265 (Version 1)
Quarter: 2013Q3

REPORT INFORMATION
  Report Type: Report from Study
  Country: MX (occurrence: MX)
  Receive Date: 20130801
  Receipt Date: 20130801
  Transmission Date: 20140515
  Serious: Yes (Other)
  Sender: FDA-Public Use
  Company Number: PHHY2013MX021954

PATIENT
  Age: 83 Year
  Sex: Female

DRUGS (5)
  1. CO-DIOVAN [Suspect]
     Indication: HYPERTENSION
     Dosage: 2 DF (160/12.5MG), DIALY
     Route: 048
     Dates: start: 2007
  2. GALVUS MET [Suspect]
     Indication: DIABETES MELLITUS
     Dosage: 2 DF (500/50 MG), DAILY
     Route: 048
     Dates: start: 2008
  3. CEPACOL (CETYLPYRIDINIUM CHLORIDE) [Concomitant]
     Dosage: 3 DF(UNK), DAILY
  4. BLODIVIT [Concomitant]
     Indication: ARTERIAL DISORDER
     Dosage: 1 DF, DAILY
     Dates: start: 201302
  5. ELATEC [Concomitant]
     Indication: VARICOSE VEIN
     Dosage: 2 DF, DAILY
     Dates: start: 2012

REACTIONS (9)
  - Osteoarthritis [Not Recovered/Not Resolved]
  - Deafness [Unknown]
  - Hypoacusis [Not Recovered/Not Resolved]
  - Feeling abnormal [Not Recovered/Not Resolved]
  - Gastritis [Recovering/Resolving]
  - Memory impairment [Not Recovered/Not Resolved]
  - Varicose vein [Unknown]
  - Concomitant disease aggravated [Unknown]
  - Influenza [Not Recovered/Not Resolved]
